FAERS Safety Report 7084660-5 (Version None)
Quarter: 2010Q4

REPORT INFORMATION
  Report Type: 
  Country: None (occurrence: None)
  Receive Date: 20101104
  Receipt Date: 20101028
  Transmission Date: 20110411
  Serious: Yes (Hospitalization, Other)
  Sender: FDA-Public Use
  Company Number: PHHY2010JP71770

PATIENT
  Age: 89 Year
  Sex: Female

DRUGS (1)
  1. COMTAN [Suspect]
     Indication: PARKINSON'S DISEASE
     Dosage: UNK
     Route: 048

REACTIONS (3)
  - DYSPHAGIA [None]
  - GASTROSTOMY [None]
  - PNEUMONIA ASPIRATION [None]
